FAERS Safety Report 9656818 (Version 1)
Quarter: 2013Q4

REPORT INFORMATION
  Report Type: Spontaneous
  Country: FR (occurrence: FR)
  Receive Date: 20131030
  Receipt Date: 20131030
  Transmission Date: 20140711
  Serious: Yes (Hospitalization)
  Sender: FDA-Public Use
  Company Number: FR-ASTRAZENECA-2013SE78932

PATIENT
  Age: 15810 Day
  Sex: Male

DRUGS (7)
  1. MOPRAL [Suspect]
     Indication: PROPHYLAXIS AGAINST GASTROINTESTINAL ULCER
     Dosage: DAILY
     Route: 048
     Dates: start: 20130709, end: 20130721
  2. PERFALGAN [Suspect]
     Indication: PAIN
     Route: 048
     Dates: start: 20130709, end: 20130727
  3. AMOXICILLINE ACIDE CLAVULANIQUE SANDOZ [Suspect]
     Indication: LUNG DISORDER
     Route: 042
     Dates: start: 20130716, end: 20130721
  4. LOXEN [Suspect]
     Indication: HYPERTENSION
     Route: 042
     Dates: start: 20130709, end: 20130721
  5. MODAMIDE [Suspect]
     Dosage: DAILY
     Route: 048
     Dates: start: 20130717
  6. TRANDATE [Concomitant]
     Dates: start: 20130715
  7. EUPRESSYL [Concomitant]
     Dates: start: 20130709

REACTIONS (4)
  - Pneumonia [Unknown]
  - Angioedema [Recovered/Resolved]
  - Urticaria [Recovered/Resolved]
  - Hypersensitivity [Recovered/Resolved]
